FAERS Safety Report 25565368 (Version 1)
Quarter: 2025Q3

REPORT INFORMATION
  Report Type: Spontaneous
  Country: US (occurrence: None)
  Receive Date: 20250716
  Receipt Date: 20250716
  Transmission Date: 20251020
  Serious: Yes (Hospitalization)
  Sender: FDA-CTU
  Company Number: None

PATIENT
  Sex: Female

DRUGS (3)
  1. KESIMPTA [Suspect]
     Active Substance: OFATUMUMAB
     Indication: Multiple sclerosis
     Route: 058
     Dates: start: 20241231
  2. FLUCONAZOLE [Concomitant]
     Active Substance: FLUCONAZOLE
  3. PREDNISONE [Concomitant]
     Active Substance: PREDNISONE

REACTIONS (9)
  - Back pain [None]
  - Fatigue [None]
  - Headache [None]
  - Paraesthesia [None]
  - Musculoskeletal stiffness [None]
  - Muscle spasticity [None]
  - Pain [None]
  - Sensory disturbance [None]
  - Multiple sclerosis relapse [None]
